FAERS Safety Report 5407109-4 (Version None)
Quarter: 2007Q3

REPORT INFORMATION
  Report Type: 
  Country: None (occurrence: None)
  Receive Date: 20070807
  Receipt Date: 20070731
  Transmission Date: 20080115
  Serious: Yes (Other)
  Sender: FDA-Public Use
  Company Number: US-BAYER-200711707BWH

PATIENT
  Sex: Male

DRUGS (4)
  1. LEVITRA [Suspect]
     Indication: ERECTILE DYSFUNCTION
     Dosage: TOTAL DAILY DOSE: 20 MG  UNIT DOSE: 20 MG
     Route: 048
  2. METFORMIN HCL [Concomitant]
  3. SULFONYLUREA DRUG [Concomitant]
  4. BLOOD PRESSURE MEDICATION (NOS) [Concomitant]
     Indication: BLOOD PRESSURE ABNORMAL

REACTIONS (1)
  - VISUAL FIELD DEFECT [None]
